FAERS Safety Report 4576281-0 (Version None)
Quarter: 2005Q1

REPORT INFORMATION
  Report Type: 
  Country: None (occurrence: None)
  Receive Date: 20050207
  Receipt Date: 20050124
  Transmission Date: 20050727
  Serious: Yes (Hospitalization, Other)
  Sender: FDA-Public Use
  Company Number: 2005019605

PATIENT
  Age: 40 Year
  Sex: Female

DRUGS (2)
  1. VIRACEPT [Suspect]
     Indication: HIV INFECTION
     Dosage: ORAL
     Route: 048
  2. LAMIVUDINE                           (LAMIVUDINE) [Suspect]
     Indication: HIV INFECTION
     Dosage: ORAL
     Route: 048

REACTIONS (10)
  - ALANINE AMINOTRANSFERASE INCREASED [None]
  - AMNIOCENTESIS ABNORMAL [None]
  - AMNIOTIC FLUID VOLUME DECREASED [None]
  - ASPARTATE AMINOTRANSFERASE INCREASED [None]
  - CAESAREAN SECTION [None]
  - DRUG EXPOSURE DURING PREGNANCY [None]
  - FOETAL DISTRESS SYNDROME [None]
  - FOETAL HEART RATE DISORDER [None]
  - HYPERTHERMIA [None]
  - PREMATURE BABY [None]
